FAERS Safety Report 7335329-0 (Version None)
Quarter: 2011Q1

REPORT INFORMATION
  Report Type: 
  Country: None (occurrence: None)
  Receive Date: 20110214
  Receipt Date: 20100513
  Transmission Date: 20110831
  Serious: Yes (Other)
  Sender: FDA-Public Use
  Company Number: 2010US-33862

PATIENT
  Sex: Female

DRUGS (2)
  1. CALAN [Suspect]
     Indication: HYPERTENSION
     Dosage: 240MG, 120 MG
  2. NEURONTIN [Concomitant]

REACTIONS (1)
  - HEART RATE DECREASED [None]
